FAERS Safety Report 7503061 (Version 4)
Quarter: 2013Q4

REPORT INFORMATION
  Report Type: Report from Study
  Country: AU (occurrence: AU)
  Receive Date: 20100727
  Receipt Date: 20131010
  Transmission Date: 20140711
  Serious: Yes (Hospitalization)
  Sender: FDA-Public Use
  Company Number: AU-AMGEN-KDC424467

PATIENT
  Age: 79 Year
  Sex: Male
  Weight: 124 kg

DRUGS (5)
  1. PANITUMUMAB [Suspect]
     Indication: COLORECTAL CANCER
     Dosage: 6 MG/KG, Q2WK
     Route: 065
     Dates: start: 20100707
  2. EVEROLIMUS [Concomitant]
     Dosage: 5 MG, QOD
     Route: 048
     Dates: start: 20100707
  3. FAMOTIDINE [Concomitant]
     Dosage: 40 MG, QD
     Route: 048
     Dates: start: 2000
  4. CANDESARTAN CILEXETIL [Concomitant]
     Dosage: 8 MG, QD
     Route: 048
     Dates: start: 2000
  5. IRINOTECAN [Concomitant]
     Dosage: 200 MG/M2, Q2WK
     Dates: start: 20100707

REACTIONS (7)
  - Rectal haemorrhage [Recovered/Resolved]
  - Pyrexia [Recovered/Resolved]
  - Burning sensation [Recovered/Resolved]
  - Paronychia [Recovered/Resolved]
  - Mucosal inflammation [Recovered/Resolved]
  - Diarrhoea [Recovered/Resolved]
  - Abdominal pain [Recovered/Resolved]
